FAERS Safety Report 8731577 (Version 12)
Quarter: 2017Q2

REPORT INFORMATION
  Report Type: Spontaneous
  Country: GB (occurrence: GB)
  Receive Date: 20120820
  Receipt Date: 20170510
  Transmission Date: 20170830
  Serious: Yes (Hospitalization, Other)
  Sender: FDA-Public Use
  Company Number: GB-JNJFOC-20120709119

PATIENT
  Age: 28 Year
  Sex: Male

DRUGS (4)
  1. RISPERDAL CONSTA [Suspect]
     Active Substance: RISPERIDONE
     Indication: PSYCHOTIC DISORDER
     Route: 030
     Dates: start: 201204
  2. RISPERDAL CONSTA [Suspect]
     Active Substance: RISPERIDONE
     Indication: PSYCHOTIC DISORDER
     Route: 030
     Dates: start: 20120508, end: 20120711
  3. DIAZEPAM. [Concomitant]
     Active Substance: DIAZEPAM
     Indication: ANXIETY
     Route: 048
     Dates: start: 2012
  4. RISPERDAL CONSTA [Suspect]
     Active Substance: RISPERIDONE
     Indication: PSYCHOTIC DISORDER
     Route: 030

REACTIONS (23)
  - Tardive dyskinesia [Unknown]
  - Hostility [Recovering/Resolving]
  - Hypokinesia [Recovered/Resolved]
  - Asthenia [Recovering/Resolving]
  - Feeling abnormal [Recovered/Resolved]
  - Personal relationship issue [Recovered/Resolved]
  - Abasia [Recovering/Resolving]
  - Emotional distress [Recovering/Resolving]
  - Tic [Not Recovered/Not Resolved]
  - Confusional state [Recovered/Resolved]
  - Speech disorder [Recovering/Resolving]
  - Sedation [Unknown]
  - Fatigue [Recovered/Resolved]
  - Inappropriate schedule of drug administration [Unknown]
  - Off label use [Unknown]
  - Weight decreased [Unknown]
  - Incoherent [Unknown]
  - Sleep disorder [Recovering/Resolving]
  - Withdrawal syndrome [Unknown]
  - Muscle twitching [Unknown]
  - Vision blurred [Recovered/Resolved]
  - Stress [Unknown]
  - Anxiety [Unknown]

NARRATIVE: CASE EVENT DATE: 200903
